FAERS Safety Report 24673969 (Version 2)
Quarter: 2025Q1

REPORT INFORMATION
  Report Type: Spontaneous
  Country: US (occurrence: US)
  Receive Date: 20241128
  Receipt Date: 20250217
  Transmission Date: 20250408
  Serious: No
  Sender: Unknown Manufacturer
  Company Number: US-THERATECHNOLOGIES INC.-2024-THE-TES-000453

PATIENT

DRUGS (2)
  1. EGRIFTA SV [Suspect]
     Active Substance: TESAMORELIN ACETATE
     Indication: Lipodystrophy acquired
     Dosage: 1.4 MG, QD (0.35 ML OF THE RECONSTITUTED SOLUTION)
     Route: 058
     Dates: start: 20241025, end: 202501
  2. LENACAPAVIR [Concomitant]
     Active Substance: LENACAPAVIR
     Indication: HIV infection
     Route: 065

REACTIONS (9)
  - Contusion [Unknown]
  - Wrong technique in product usage process [Recovering/Resolving]
  - Dizziness [Recovered/Resolved]
  - Injection site pain [Recovering/Resolving]
  - Therapeutic product effect incomplete [Unknown]
  - Feeling abnormal [Recovered/Resolved]
  - Pyrexia [Recovered/Resolved]
  - Asthenia [Recovered/Resolved]
  - Fall [Recovered/Resolved]

NARRATIVE: CASE EVENT DATE: 20241028
